FAERS Safety Report 9613159 (Version 1)
Quarter: 2013Q4

REPORT INFORMATION
  Report Type: Spontaneous
  Country: AU (occurrence: AU)
  Receive Date: 20131010
  Receipt Date: 20131010
  Transmission Date: 20140711
  Serious: Yes (Death, Congenital Anomaly, Other)
  Sender: FDA-Public Use
  Company Number: AU-ABBVIE-13P-008-1155640-00

PATIENT
  Sex: Female

DRUGS (3)
  1. EPILIM [Suspect]
     Indication: MATERNAL EXPOSURE TIMING UNSPECIFIED
     Route: 064
  2. RIVOTRIL [Suspect]
     Indication: MATERNAL EXPOSURE TIMING UNSPECIFIED
     Route: 064
  3. TEGRETOL [Suspect]
     Indication: MATERNAL EXPOSURE TIMING UNSPECIFIED
     Route: 064

REACTIONS (4)
  - Foetal death [Fatal]
  - Cerebral haemorrhage [Fatal]
  - Congenital hydrocephalus [Fatal]
  - Foetal exposure during pregnancy [Unknown]
